FAERS Safety Report 7945124-7 (Version None)
Quarter: 2011Q4

REPORT INFORMATION
  Report Type: 
  Country: None (occurrence: None)
  Receive Date: 20111129
  Receipt Date: 20111129
  Transmission Date: 20120403
  Serious: Yes (Hospitalization)
  Sender: FDA-Public Use
  Company Number: None

PATIENT
  Age: 50 Year
  Sex: Male
  Weight: 61.234 kg

DRUGS (1)
  1. IPILIMUMAB [Suspect]
     Indication: METASTATIC MALIGNANT MELANOMA
     Dosage: 3MG/KG
     Route: 041
     Dates: start: 20111111, end: 20111117

REACTIONS (4)
  - BLOOD POTASSIUM DECREASED [None]
  - SENSATION OF PRESSURE [None]
  - PANCREATITIS [None]
  - DIARRHOEA [None]
